FAERS Safety Report 16476545 (Version 1)
Quarter: 2019Q2

REPORT INFORMATION
  Report Type: Spontaneous
  Country: IE (occurrence: IE)
  Receive Date: 20190626
  Receipt Date: 20190626
  Transmission Date: 20190711
  Serious: Yes (Other)
  Sender: FDA-Public Use
  Company Number: IE-BAXTER-2019BAX012199

PATIENT
  Age: 75 Year
  Sex: Male

DRUGS (6)
  1. SODIUM CHLORIDE INTRAVENOUS INFUSION BP 0.9% W/V [Suspect]
     Active Substance: SODIUM CHLORIDE
     Indication: MEDICATION DILUTION
     Route: 065
  2. SODIUM CHLORIDE INTRAVENOUS INFUSION BP 0.9% W/V [Suspect]
     Active Substance: SODIUM CHLORIDE
     Route: 058
     Dates: start: 20190221
  3. WATER FOR INJECTION [Suspect]
     Active Substance: WATER
     Route: 058
     Dates: start: 20190221
  4. DESFERRIOXAMINE [Suspect]
     Active Substance: DEFEROXAMINE MESYLATE
     Indication: PRODUCT USED FOR UNKNOWN INDICATION
     Route: 065
  5. DESFERRIOXAMINE [Suspect]
     Active Substance: DEFEROXAMINE MESYLATE
     Route: 058
     Dates: start: 20190221
  6. WATER FOR INJECTION [Suspect]
     Active Substance: WATER
     Indication: MEDICATION DILUTION
     Route: 065

REACTIONS (2)
  - Condition aggravated [Unknown]
  - Renal impairment [Unknown]

NARRATIVE: CASE EVENT DATE: 20190617
